FAERS Safety Report 7423180-2 (Version None)
Quarter: 2011Q2

REPORT INFORMATION
  Report Type: 
  Country: None (occurrence: None)
  Receive Date: 20110411
  Receipt Date: 20110328
  Transmission Date: 20111010
  Serious: No
  Sender: FDA-Public Use
  Company Number: DAV-AE-MTX-11-033

PATIENT
  Sex: Female

DRUGS (1)
  1. METHOTREXATE 10MG/WK [Suspect]
     Indication: RHEUMATOID ARTHRITIS
     Dosage: 10MG/WK

REACTIONS (1)
  - PULMONARY TOXICITY [None]
